FAERS Safety Report 23587456 (Version 2)
Quarter: 2024Q1

REPORT INFORMATION
  Report Type: Report from Study
  Country: US (occurrence: US)
  Receive Date: 20240301
  Receipt Date: 20240307
  Transmission Date: 20240410
  Serious: No
  Sender: FDA-Public Use
  Company Number: US-AstraZeneca-CH-00572875A

PATIENT
  Age: 37 Year
  Sex: Female

DRUGS (1)
  1. STRENSIQ [Suspect]
     Active Substance: ASFOTASE ALFA
     Indication: Product used for unknown indication
     Dosage: 168 MILLIGRAM,3 TIMES A WEEK
     Route: 058
     Dates: start: 20240128

REACTIONS (14)
  - Feeling abnormal [Not Recovered/Not Resolved]
  - Hyperhidrosis [Not Recovered/Not Resolved]
  - Pain [Recovering/Resolving]
  - Vitamin B6 decreased [Recovering/Resolving]
  - Blood alkaline phosphatase increased [Not Recovered/Not Resolved]
  - Staphylococcal infection [Recovering/Resolving]
  - Gait disturbance [Not Recovered/Not Resolved]
  - Metabolic acidosis [Not Recovered/Not Resolved]
  - Blood albumin increased [Not Recovered/Not Resolved]
  - Weight decreased [Not Recovered/Not Resolved]
  - Skin discolouration [Unknown]
  - Pain in extremity [Unknown]
  - Scab [Not Recovered/Not Resolved]
  - Skin wound [Not Recovered/Not Resolved]

NARRATIVE: CASE EVENT DATE: 20231001
